FAERS Safety Report 6111900-9 (Version None)
Quarter: 2009Q1

REPORT INFORMATION
  Report Type: 
  Country: None (occurrence: None)
  Receive Date: 20090311
  Receipt Date: 20080612
  Transmission Date: 20090719
  Serious: No
  Sender: FDA-Public Use
  Company Number: US-TYCO HEALTHCARE/MALLINCKRODT-T200801010

PATIENT

DRUGS (2)
  1. SODIUM IODIDE I 123 [Suspect]
     Indication: SCAN THYROID GLAND
     Dosage: 100 UCI, SINGLE
     Route: 048
     Dates: start: 20080612, end: 20080612
  2. SODIUM IODIDE I 123 [Suspect]
     Indication: SCAN THYROID GLAND
     Dosage: 200 UCI, SINGLE
     Route: 048
     Dates: start: 20080612, end: 20080612

REACTIONS (3)
  - EYE SWELLING [None]
  - MIGRAINE [None]
  - RASH [None]
